FAERS Safety Report 5825791-4 (Version None)
Quarter: 2008Q3

REPORT INFORMATION
  Report Type: 
  Country: None (occurrence: None)
  Receive Date: 20080723
  Receipt Date: 20080718
  Transmission Date: 20090109
  Serious: Yes (Death, Life-Threatening, Disabling, Other)
  Sender: FDA-Public Use
  Company Number: 2008SP008977

PATIENT
  Age: 84 Year
  Sex: Male
  Weight: 59 kg

DRUGS (7)
  1. TEMODAL [Suspect]
     Indication: GLIOBLASTOMA MULTIFORME
     Dosage: 120 MG; QD; PO
     Route: 048
     Dates: start: 20080403, end: 20080423
  2. OPALMON [Concomitant]
  3. TERNELIN [Concomitant]
  4. EXCEGRAN [Concomitant]
  5. GASTER D [Concomitant]
  6. PANTOSIN [Concomitant]
  7. MAGMITT [Concomitant]

REACTIONS (12)
  - ANAEMIA [None]
  - ANOREXIA [None]
  - ASCITES [None]
  - BLOOD BETA-D-GLUCAN INCREASED [None]
  - BLOOD PRESSURE DECREASED [None]
  - DIARRHOEA [None]
  - DISSEMINATED INTRAVASCULAR COAGULATION [None]
  - ELECTROLYTE IMBALANCE [None]
  - GASTROINTESTINAL DISORDER [None]
  - HYPOPROTEINAEMIA [None]
  - INFECTION [None]
  - NAUSEA [None]
